FAERS Safety Report 8245624-9 (Version None)
Quarter: 2012Q1

REPORT INFORMATION
  Report Type: 
  Country: None (occurrence: None)
  Receive Date: 20120330
  Receipt Date: 20120321
  Transmission Date: 20120608
  Serious: Yes (Hospitalization)
  Sender: FDA-Public Use
  Company Number: JP-BIOGENIDEC-2011BI040162

PATIENT
  Age: 33 Year
  Sex: Male

DRUGS (5)
  1. PROLMON [Concomitant]
     Dates: start: 20110926
  2. IBUPROFEN [Concomitant]
     Indication: PROPHYLAXIS
     Route: 048
     Dates: start: 20110828, end: 20110911
  3. URSO 250 [Concomitant]
     Dates: start: 20110926
  4. AVONEX [Suspect]
     Indication: MULTIPLE SCLEROSIS
     Route: 030
     Dates: start: 20110828, end: 20110918
  5. REBAMIPIDE [Concomitant]
     Dates: start: 20110828, end: 20110918

REACTIONS (3)
  - ASPARTATE AMINOTRANSFERASE INCREASED [None]
  - HEPATITIS FULMINANT [None]
  - ALANINE AMINOTRANSFERASE INCREASED [None]
